FAERS Safety Report 26099340 (Version 4)
Quarter: 2025Q4

REPORT INFORMATION
  Report Type: Report from Study
  Country: US (occurrence: US)
  Receive Date: 20251128
  Receipt Date: 20251224
  Transmission Date: 20260118
  Serious: Yes (Disabling, Other)
  Sender: ACADIA PHARMACEUTICALS
  Company Number: US-ACADIA PHARMACEUTICALS INC.-ACA-2025-PIM-012610

PATIENT
  Sex: Male

DRUGS (1)
  1. NUPLAZID [Suspect]
     Active Substance: PIMAVANSERIN TARTRATE
     Indication: Parkinson^s disease psychosis
     Dosage: 34 MILLIGRAM, QD
     Route: 048

REACTIONS (7)
  - Disability [Not Recovered/Not Resolved]
  - Dysgraphia [Not Recovered/Not Resolved]
  - Speech disorder [Recovering/Resolving]
  - Temperature intolerance [Unknown]
  - Cough [Unknown]
  - Logorrhoea [Unknown]
  - Gait inability [Not Recovered/Not Resolved]
